FAERS Safety Report 13942566 (Version 1)
Quarter: 2017Q3

REPORT INFORMATION
  Report Type: Spontaneous
  Country: US (occurrence: None)
  Receive Date: 20170907
  Receipt Date: 20170907
  Transmission Date: 20171127
  Serious: Yes (Hospitalization)
  Sender: FDA-Public Use
  Company Number: None

PATIENT
  Age: 7 Year
  Sex: Male
  Weight: 21.8 kg

DRUGS (5)
  1. CLOLAR [Suspect]
     Active Substance: CLOFARABINE
     Dates: end: 20140818
  2. CYCLOPHOSPHAMIDE. [Suspect]
     Active Substance: CYCLOPHOSPHAMIDE
     Dates: end: 20140819
  3. ONCASPAR [Suspect]
     Active Substance: PEGASPARGASE
     Dates: end: 20140828
  4. ETOPOSIDE (VP-16) [Suspect]
     Active Substance: ETOPOSIDE
     Dates: end: 20140819
  5. VINCRISTINE SULFATE. [Suspect]
     Active Substance: VINCRISTINE SULFATE
     Dates: end: 20140904

REACTIONS (7)
  - Cellulitis [None]
  - Pseudomonas test positive [None]
  - Syncope [None]
  - Neutropenia [None]
  - Anal fissure [None]
  - Dizziness [None]
  - Septic shock [None]

NARRATIVE: CASE EVENT DATE: 20140823
